FAERS Safety Report 9612546 (Version 1)
Quarter: 2013Q4

REPORT INFORMATION
  Report Type: Spontaneous
  Country: US (occurrence: US)
  Receive Date: 20131010
  Receipt Date: 20131010
  Transmission Date: 20140711
  Serious: No
  Sender: FDA-Public Use
  Company Number: US-009507513-1310USA004222

PATIENT
  Age: 5 Year
  Sex: Male

DRUGS (2)
  1. CLARITIN ORAL SOLUTION [Suspect]
     Indication: NASOPHARYNGITIS
     Dosage: UNK, UNKNOWN
     Route: 048
  2. CLARITIN ORAL SOLUTION [Suspect]
     Indication: HYPERSENSITIVITY

REACTIONS (2)
  - Pyrexia [Unknown]
  - Expired drug administered [Unknown]
